FAERS Safety Report 18960425 (Version 2)
Quarter: 2021Q1

REPORT INFORMATION
  Report Type: Report from Study
  Country: US (occurrence: US)
  Receive Date: 20210303
  Receipt Date: 20210318
  Transmission Date: 20210420
  Serious: No
  Sender: FDA-Public Use
  Company Number: US-SA-2020SA258897

PATIENT
  Age: 82 Year
  Sex: Male

DRUGS (3)
  1. DUPILUMAB [Suspect]
     Active Substance: DUPILUMAB
     Indication: DERMATITIS ATOPIC
     Dosage: 600 MG, 1X
     Route: 058
     Dates: start: 20200910, end: 20200910
  2. DUPILUMAB [Suspect]
     Active Substance: DUPILUMAB
     Indication: ECZEMA
     Dosage: 300 MG, QOW
     Route: 058
     Dates: start: 202009
  3. COVID?19 VACCINE [Concomitant]
     Dosage: UNK
     Route: 065

REACTIONS (10)
  - Scratch [Not Recovered/Not Resolved]
  - Somnolence [Unknown]
  - Injection site mass [Unknown]
  - Erythema of eyelid [Unknown]
  - Rash macular [Not Recovered/Not Resolved]
  - Product dose omission issue [Unknown]
  - Eye swelling [Not Recovered/Not Resolved]
  - Pruritus [Not Recovered/Not Resolved]
  - Ocular discomfort [Unknown]
  - Swelling of eyelid [Unknown]

NARRATIVE: CASE EVENT DATE: 202009
